FAERS Safety Report 20017908 (Version 2)
Quarter: 2021Q4

REPORT INFORMATION
  Report Type: Spontaneous
  Country: UA (occurrence: None)
  Receive Date: 20211101
  Receipt Date: 20211120
  Transmission Date: 20220303
  Serious: Yes (Other)
  Sender: FDA-Public Use
  Company Number: UA-ROCHE-2947099

PATIENT
  Age: 66 Year
  Sex: Female

DRUGS (3)
  1. AVASTIN [Suspect]
     Active Substance: BEVACIZUMAB
     Indication: Rectal cancer
     Dosage: START DATE AND DURATION OF TREATMENT /JUN/2021 TO /SEP/2021.
     Route: 041
  2. AVASTIN [Suspect]
     Active Substance: BEVACIZUMAB
     Indication: Colon cancer
  3. XELODA [Suspect]
     Active Substance: CAPECITABINE
     Indication: Rectal cancer
     Route: 048

REACTIONS (4)
  - Metastases to lung [Unknown]
  - Condition aggravated [Unknown]
  - Headache [Unknown]
  - Pyrexia [Unknown]
